FAERS Safety Report 4699924-X (Version None)
Quarter: 2005Q2

REPORT INFORMATION
  Report Type: 
  Country: None (occurrence: None)
  Receive Date: 20050624
  Receipt Date: 20050617
  Transmission Date: 20051028
  Serious: Yes (Other)
  Sender: FDA-Public Use
  Company Number: CH-MERCK-0506CHE00023

PATIENT
  Age: 37 Year
  Sex: Female

DRUGS (1)
  1. NOROXIN [Suspect]
     Route: 048
     Dates: start: 20050516, end: 20050523

REACTIONS (1)
  - DRUG EXPOSURE DURING PREGNANCY [None]
